FAERS Safety Report 4922102-3 (Version None)
Quarter: 2006Q1

REPORT INFORMATION
  Report Type: 
  Country: None (occurrence: None)
  Receive Date: 20060222
  Receipt Date: 20060222
  Transmission Date: 20060701
  Serious: Yes (Hospitalization)
  Sender: FDA-Public Use
  Company Number: None

PATIENT
  Age: 82 Year
  Sex: Female
  Weight: 63.05 kg

DRUGS (10)
  1. ACETAZOLAMIDE [Suspect]
     Indication: GLAUCOMA
     Dosage: 500 MG BID    3 DAYS LAST WEEK
  2. IBUPROFEN [Suspect]
     Indication: PAIN
     Dosage: 200 MG PO PRN  OCCASIONAL
     Route: 048
  3. NORVASC [Concomitant]
  4. DIOVAN [Concomitant]
  5. XANAX [Concomitant]
  6. NOMENDA [Concomitant]
  7. EFFEXOR [Concomitant]
  8. COSOPT [Concomitant]
  9. LOTEMAX [Concomitant]
  10. ALPHAGAN [Concomitant]

REACTIONS (3)
  - CONFUSIONAL STATE [None]
  - DEHYDRATION [None]
  - ELECTROLYTE IMBALANCE [None]
